FAERS Safety Report 7476864-4 (Version None)
Quarter: 2011Q2

REPORT INFORMATION
  Report Type: 
  Country: None (occurrence: None)
  Receive Date: 20110512
  Receipt Date: 20091113
  Transmission Date: 20111010
  Serious: Yes (Disabling, Other)
  Sender: FDA-Public Use
  Company Number: US-BAYER-200939385NA

PATIENT
  Age: 56 Year
  Sex: Male
  Weight: 99.773 kg

DRUGS (11)
  1. ANCEF [Concomitant]
     Dosage: 1 G, UNK
     Route: 042
  2. NAPROSYN [Concomitant]
     Dosage: 500 MG, BID
     Route: 048
  3. METFORMIN HCL [Concomitant]
     Dosage: 500 MG, QD
     Route: 048
  4. HEPARIN [Concomitant]
     Route: 042
  5. LOVASTATIN [Concomitant]
     Dosage: 10 MG, QD
     Route: 048
  6. NORVASC [Concomitant]
     Dosage: 2.5 MG, BID
     Route: 048
  7. LEVITRA [Concomitant]
     Dosage: 20 MG, UNK
  8. LIPITOR [Concomitant]
  9. PROTAMINE SULFATE [Concomitant]
     Dosage: 504 MG, UNK
     Route: 042
  10. TRASYLOL [Suspect]
     Indication: CORONARY ARTERY BYPASS
     Dosage: 100 ML PRIME PUMP
     Route: 042
     Dates: start: 20061103
  11. TOPROL-XL [Concomitant]
     Dosage: 25 MG, QD
     Route: 048

REACTIONS (14)
  - RENAL INJURY [None]
  - CARDIAC TAMPONADE [None]
  - UNEVALUABLE EVENT [None]
  - HEART INJURY [None]
  - DEPRESSION [None]
  - ANXIETY [None]
  - FEAR [None]
  - PAIN [None]
  - SHOCK [None]
  - PERICARDIAL EFFUSION [None]
  - STRESS [None]
  - MYOCARDIAL INFARCTION [None]
  - EMOTIONAL DISTRESS [None]
  - INJURY [None]
